FAERS Safety Report 12111701 (Version 1)
Quarter: 2016Q1

REPORT INFORMATION
  Report Type: Spontaneous
  Country: US (occurrence: US)
  Receive Date: 20160224
  Receipt Date: 20160224
  Transmission Date: 20160526
  Serious: No
  Sender: FDA-Public Use
  Company Number: US-JAZZ-2014-US-010098

PATIENT
  Age: 52 Year
  Sex: Female

DRUGS (18)
  1. PRIALT [Suspect]
     Active Substance: ZICONOTIDE ACETATE
     Dosage: UNK ?G, QH
     Route: 037
     Dates: start: 20140710, end: 20140804
  2. BUPIVACAINE HYDROCHLORIDE. [Suspect]
     Active Substance: BUPIVACAINE HYDROCHLORIDE
     Dosage: 0.315 MG, QH
     Route: 037
  3. BUPIVACAINE HYDROCHLORIDE. [Suspect]
     Active Substance: BUPIVACAINE HYDROCHLORIDE
     Dosage: 0.15 MG, QH
     Route: 037
     Dates: start: 20140911
  4. PRIALT [Suspect]
     Active Substance: ZICONOTIDE ACETATE
     Indication: MUSCLE SPASTICITY
     Dosage: 0.017 ?G, QH
     Route: 037
     Dates: start: 20140605, end: 20140612
  5. BACLOFEN. [Suspect]
     Active Substance: BACLOFEN
     Indication: BRAIN INJURY
     Dosage: 24.98 ?G, QH
     Route: 037
  6. BACLOFEN. [Suspect]
     Active Substance: BACLOFEN
     Indication: MUSCLE SPASTICITY
     Dosage: 25.01 ?G, QH
     Route: 037
  7. BACLOFEN. [Suspect]
     Active Substance: BACLOFEN
     Dosage: 26.27 ?G, QH
     Route: 037
  8. PRIALT [Suspect]
     Active Substance: ZICONOTIDE ACETATE
     Dosage: 0.021 ?G, QH
     Route: 037
     Dates: start: 20140911
  9. CLONIDINE. [Suspect]
     Active Substance: CLONIDINE
     Dosage: 8.76 ?G, QH
     Route: 037
  10. PRIALT [Suspect]
     Active Substance: ZICONOTIDE ACETATE
     Indication: BRAIN INJURY
     Dosage: 0.017 ?G, UNK
     Route: 037
     Dates: start: 20140515, end: 20140605
  11. BACLOFEN. [Suspect]
     Active Substance: BACLOFEN
     Dosage: 12.49 ?G, QH
     Route: 037
     Dates: start: 20140911
  12. BUPIVACAINE HYDROCHLORIDE. [Suspect]
     Active Substance: BUPIVACAINE HYDROCHLORIDE
     Indication: BRAIN INJURY
     Dosage: 0.299 MG, QH
     Route: 037
  13. PRIALT [Suspect]
     Active Substance: ZICONOTIDE ACETATE
     Dosage: 0.018 ?G, QH
     Route: 037
     Dates: start: 20140612, end: 20140710
  14. CLONIDINE. [Suspect]
     Active Substance: CLONIDINE
     Indication: BRAIN INJURY
     Dosage: 8.33 ?G, QH
     Route: 037
  15. CLONIDINE. [Suspect]
     Active Substance: CLONIDINE
     Indication: MUSCLE SPASTICITY
     Dosage: 8.34 ?G, QH
     Route: 037
  16. CLONIDINE. [Suspect]
     Active Substance: CLONIDINE
     Dosage: 4.16 ?G, QH
     Route: 037
     Dates: start: 20140911
  17. PRIALT [Suspect]
     Active Substance: ZICONOTIDE ACETATE
     Dosage: UNK ?G, QH
     Route: 037
     Dates: start: 20140804, end: 20140911
  18. BUPIVACAINE HYDROCHLORIDE. [Suspect]
     Active Substance: BUPIVACAINE HYDROCHLORIDE
     Indication: MUSCLE SPASTICITY
     Dosage: 0.3 MG, QH
     Route: 037

REACTIONS (2)
  - Pain [Recovered/Resolved]
  - Device issue [Recovered/Resolved]

NARRATIVE: CASE EVENT DATE: 20140605
